FAERS Safety Report 6688608-4 (Version None)
Quarter: 2010Q2

REPORT INFORMATION
  Report Type: 
  Country: None (occurrence: None)
  Receive Date: 20100420
  Receipt Date: 20100415
  Transmission Date: 20101027
  Serious: Yes (Other)
  Sender: FDA-Public Use
  Company Number: US-ELI_LILLY_AND_COMPANY-US201004004389

PATIENT
  Sex: Female

DRUGS (6)
  1. HUMALOG MIX 75/25 [Suspect]
     Indication: TYPE 2 DIABETES MELLITUS
     Dosage: 20 U, 2/D
     Dates: start: 20100201
  2. HUMALOG MIX 75/25 [Suspect]
     Dosage: 20 U, 2/D
     Dates: start: 20100201
  3. HUMALOG MIX 75/25 [Suspect]
     Dosage: 20 U, 2/D
     Dates: start: 20090601
  4. LISINOPRIL [Concomitant]
  5. METOPROLOL TARTRATE [Concomitant]
  6. ASPIRIN [Concomitant]

REACTIONS (7)
  - ANKLE FRACTURE [None]
  - BLOOD GLUCOSE INCREASED [None]
  - DRUG DISPENSING ERROR [None]
  - FALL [None]
  - MUSCULOSKELETAL DISORDER [None]
  - NERVE INJURY [None]
  - SPINAL OPERATION [None]
